FAERS Safety Report 7362602-2 (Version None)
Quarter: 2011Q1

REPORT INFORMATION
  Report Type: 
  Country: None (occurrence: None)
  Receive Date: 20110320
  Receipt Date: 20100430
  Transmission Date: 20110831
  Serious: Yes (Hospitalization, Other)
  Sender: FDA-Public Use
  Company Number: US-BAYER-201015628NA

PATIENT
  Sex: Female
  Weight: 81.633 kg

DRUGS (10)
  1. NAPROXEN [Concomitant]
     Indication: MIGRAINE
     Dosage: UNK MG, UNK
     Dates: start: 20090804
  2. FLORASTOR [Concomitant]
     Indication: DIARRHOEA
  3. YAZ [Suspect]
     Indication: PRODUCT USED FOR UNKNOWN INDICATION
     Route: 048
     Dates: start: 20061101, end: 20090818
  4. YASMIN [Suspect]
     Dosage: UNK
     Dates: start: 20061101, end: 20090818
  5. DEPACON [Concomitant]
     Indication: MIGRAINE
     Dosage: 500 MG, UNK
     Route: 042
  6. PHENERGAN [Concomitant]
  7. AMBIEN CR [Concomitant]
     Dosage: 12.5 MG, UNK
     Route: 048
  8. AXERT [Concomitant]
     Indication: MIGRAINE
     Dosage: UNK
     Dates: start: 20090731
  9. ZOMIG [Concomitant]
     Indication: MIGRAINE
     Dosage: UNK
     Route: 045
     Dates: start: 20090801
  10. YASMIN [Suspect]
     Indication: ORAL CONTRACEPTION
     Route: 048
     Dates: start: 20030213, end: 20031117

REACTIONS (2)
  - CEREBRAL VENOUS THROMBOSIS [None]
  - INTRACRANIAL VENOUS SINUS THROMBOSIS [None]
